FAERS Safety Report 25747525 (Version 1)
Quarter: 2025Q3

REPORT INFORMATION
  Report Type: Spontaneous
  Country: GB (occurrence: GB)
  Receive Date: 20250901
  Receipt Date: 20250901
  Transmission Date: 20251020
  Serious: Yes (Other)
  Sender: ABBVIE
  Company Number: GB-ABBVIE-6436285

PATIENT

DRUGS (1)
  1. RISANKIZUMAB [Suspect]
     Active Substance: RISANKIZUMAB
     Indication: Inflammatory bowel disease
     Route: 058

REACTIONS (5)
  - Suspected drug-induced liver injury [Unknown]
  - Hepatic fibrosis [Unknown]
  - Liver function test abnormal [Recovering/Resolving]
  - Inflammation [Unknown]
  - Viral infection [Unknown]
